FAERS Safety Report 11497524 (Version 4)
Quarter: 2018Q1

REPORT INFORMATION
  Report Type: Spontaneous
  Country: US (occurrence: US)
  Receive Date: 20150911
  Receipt Date: 20180123
  Transmission Date: 20180508
  Serious: Yes (Hospitalization, Other)
  Sender: FDA-Public Use
  Company Number: US-DSJP-DSU-2015-119463

PATIENT

DRUGS (2)
  1. BENICAR [Suspect]
     Active Substance: OLMESARTAN MEDOXOMIL
     Indication: BLOOD PRESSURE INCREASED
     Dosage: 20 MG, QD
     Route: 048
     Dates: start: 20120719
  2. BENICAR HCT [Suspect]
     Active Substance: HYDROCHLOROTHIAZIDE\OLMESARTAN MEDOXOMIL
     Indication: HYPERTENSION
     Dosage: 40/25 MG, QD
     Route: 048
     Dates: start: 20070401, end: 20120701

REACTIONS (16)
  - Dizziness [Unknown]
  - Sprue-like enteropathy [Recovering/Resolving]
  - Depression [Unknown]
  - Gastrooesophageal reflux disease [Unknown]
  - Abscess intestinal [Unknown]
  - Constipation [Unknown]
  - Gastrointestinal inflammation [Unknown]
  - Dyspnoea [Unknown]
  - Hiatus hernia [Unknown]
  - Anxiety [Unknown]
  - Small intestinal obstruction [Unknown]
  - Renal mass [Unknown]
  - Nephrolithiasis [Unknown]
  - Pelvic abscess [Unknown]
  - Diverticulitis [Unknown]
  - Umbilical hernia [Unknown]

NARRATIVE: CASE EVENT DATE: 20070401
